FAERS Safety Report 10182414 (Version 1)
Quarter: 2014Q2

REPORT INFORMATION
  Report Type: Spontaneous
  Country: SE (occurrence: SE)
  Receive Date: 20140520
  Receipt Date: 20140520
  Transmission Date: 20141212
  Serious: Yes (Death)
  Sender: FDA-Public Use
  Company Number: SE-ROCHE-1402999

PATIENT
  Age: 79 Year
  Sex: Female

DRUGS (2)
  1. MABTHERA [Suspect]
     Indication: RHEUMATOID ARTHRITIS
     Route: 065
     Dates: start: 20111031, end: 20140315
  2. PREDNISOLONE [Concomitant]
     Route: 065

REACTIONS (2)
  - Aortic dissection [Fatal]
  - Sudden death [Fatal]
